FAERS Safety Report 4568251-3 (Version None)
Quarter: 2005Q1

REPORT INFORMATION
  Report Type: 
  Country: None (occurrence: None)
  Receive Date: 20050131
  Receipt Date: 20050120
  Transmission Date: 20050727
  Serious: Yes (Hospitalization)
  Sender: FDA-Public Use
  Company Number: 2005CG00162

PATIENT
  Age: 50 Year
  Sex: Male
  Weight: 66 kg

DRUGS (16)
  1. OMEPRAZOLE [Suspect]
     Dosage: 20 MG DAILY PO
     Route: 048
     Dates: start: 20041112
  2. MYAMBUTOL [Suspect]
     Dosage: 1200 MG DAILY PO
     Route: 048
     Dates: start: 20040906, end: 20041218
  3. VFEND [Suspect]
     Dosage: 400 MG DAILY IV
     Route: 042
     Dates: start: 20040906
  4. REFABUTINE [Suspect]
  5. ZECLAR [Suspect]
  6. NICARDIPINE HCL [Suspect]
  7. TOPALGIC ^HOUDE^ [Suspect]
  8. EPIVIR [Suspect]
  9. NORVIR [Suspect]
  10. CRIXIVAN [Suspect]
  11. NEUPOGEN [Suspect]
  12. IMOVANE [Suspect]
  13. ZIAGEN [Suspect]
  14. BACTRIM [Suspect]
  15. LEDERFOLIN [Suspect]
  16. CLONAZEPAM [Suspect]

REACTIONS (2)
  - OPTIC NEUROPATHY [None]
  - SCOTOMA [None]
